FAERS Safety Report 11533718 (Version 2)
Quarter: 2015Q3

REPORT INFORMATION
  Report Type: Spontaneous
  Country: TR (occurrence: TR)
  Receive Date: 20150921
  Receipt Date: 20150929
  Transmission Date: 20151125
  Serious: Yes (Hospitalization, Other)
  Sender: FDA-Public Use
  Company Number: TR-AMGEN-TURSP2015063966

PATIENT
  Age: 15 Year
  Sex: Male
  Weight: 66 kg

DRUGS (1)
  1. ENBREL [Suspect]
     Active Substance: ETANERCEPT
     Indication: PRODUCT USED FOR UNKNOWN INDICATION
     Dosage: UNK UNK, 2X/WEEK
     Route: 058
     Dates: start: 20150126, end: 20150305

REACTIONS (12)
  - Leukocytosis [Recovered/Resolved]
  - Arthralgia [Unknown]
  - Night sweats [Unknown]
  - Ankylosing spondylitis [Unknown]
  - Arthropathy [Unknown]
  - Brucellosis [Recovering/Resolving]
  - Musculoskeletal stiffness [Recovered/Resolved]
  - Bone marrow oedema [Unknown]
  - Pyrexia [Unknown]
  - Osteosclerosis [Unknown]
  - Back pain [Recovered/Resolved]
  - Pain [Unknown]

NARRATIVE: CASE EVENT DATE: 2015
